FAERS Safety Report 11519497 (Version 1)
Quarter: 2015Q3

REPORT INFORMATION
  Report Type: Spontaneous
  Country: US (occurrence: US)
  Receive Date: 20150918
  Receipt Date: 20150918
  Transmission Date: 20151125
  Serious: No
  Sender: FDA-Public Use
  Company Number: US-GLENMARK PHARMACEUTICALS INC, USA.-2014GMK010307

PATIENT
  Sex: Female

DRUGS (5)
  1. LUPRON DEPOT-PED [Suspect]
     Active Substance: LEUPROLIDE ACETATE
     Dosage: 3.75 MG PER MONTH
     Dates: start: 20140428
  2. LEVOTHYROXINE. [Concomitant]
     Active Substance: LEVOTHYROXINE
     Dosage: 150 MG, QD
  3. IRON [Concomitant]
     Active Substance: IRON
     Dosage: 65 MG, QD
     Route: 042
  4. NORETHINDRONE ACETATE TABLETS [Suspect]
     Active Substance: NORETHINDRONE ACETATE
     Dosage: 5 MG, QD
     Route: 048
     Dates: start: 20140428, end: 20140609
  5. PROVERA [Concomitant]
     Active Substance: MEDROXYPROGESTERONE ACETATE
     Dosage: 10 MG, BID
     Dates: start: 20140609

REACTIONS (2)
  - Metrorrhagia [Recovered/Resolved]
  - Product use issue [Unknown]
